FAERS Safety Report 7499497-2 (Version None)
Quarter: 2011Q2

REPORT INFORMATION
  Report Type: 
  Country: None (occurrence: None)
  Receive Date: 20110524
  Receipt Date: 20110517
  Transmission Date: 20111010
  Serious: Yes (Death, Other)
  Sender: FDA-Public Use
  Company Number: PHHY2011US38288

PATIENT
  Sex: Female

DRUGS (9)
  1. CRESTOR [Concomitant]
  2. NIASPAN [Concomitant]
  3. DIOVAN [Suspect]
     Dosage: 160 MG DAILY
  4. AMBIEN [Concomitant]
     Dosage: UNK
  5. GABAPENTIN [Concomitant]
     Dosage: UNK
  6. PANTOPRAZOLE [Concomitant]
  7. METOPROLOL [Concomitant]
  8. XANAX [Concomitant]
  9. DIOVAN [Suspect]
     Dosage: 80 MG DAILY

REACTIONS (4)
  - HYPOTENSION [None]
  - LOSS OF CONSCIOUSNESS [None]
  - DEATH [None]
  - WRONG TECHNIQUE IN DRUG USAGE PROCESS [None]
